FAERS Safety Report 4330675-7 (Version None)
Quarter: 2004Q2

REPORT INFORMATION
  Report Type: 
  Country: None (occurrence: None)
  Receive Date: 20040402
  Receipt Date: 20040401
  Transmission Date: 20050107
  Serious: Yes (Other)
  Sender: FDA-Public Use
  Company Number: DE-GLAXOSMITHKLINE-D0043506A

PATIENT
  Age: 24 Year
  Sex: Female
  Weight: 75 kg

DRUGS (1)
  1. ZYBAN [Suspect]
     Dosage: 44TAB SINGLE DOSE
     Route: 048

REACTIONS (1)
  - SUICIDE ATTEMPT [None]
